FAERS Safety Report 11533370 (Version 1)
Quarter: 2015Q3

REPORT INFORMATION
  Report Type: Spontaneous
  Country: US (occurrence: US)
  Receive Date: 20150921
  Receipt Date: 20150921
  Transmission Date: 20151125
  Serious: No
  Sender: FDA-Public Use
  Company Number: US-ALLERGAN-1425863US

PATIENT
  Age: 58 Year
  Sex: Female

DRUGS (7)
  1. SINGULAIR [Concomitant]
     Active Substance: MONTELUKAST SODIUM
     Dosage: UNK
  2. NASACORT [Concomitant]
     Active Substance: TRIAMCINOLONE ACETONIDE
     Dosage: UNK
  3. VIVELLE DOT [Concomitant]
     Active Substance: ESTRADIOL
     Indication: OESTROGEN THERAPY
     Dosage: UNK
  4. PROMETRIUM [Concomitant]
     Active Substance: PROGESTERONE
     Indication: PROGESTERONE
     Dosage: UNK
  5. SYNTHROID [Concomitant]
     Active Substance: LEVOTHYROXINE SODIUM
     Indication: THYROID DISORDER
     Dosage: UNK
  6. LASTACAFT [Suspect]
     Active Substance: ALCAFTADINE
     Dosage: 2 GTT, QAM
     Route: 047
     Dates: end: 201410
  7. LASTACAFT [Suspect]
     Active Substance: ALCAFTADINE
     Indication: HYPERSENSITIVITY
     Dosage: 2 GTT, QAM
     Route: 047
     Dates: start: 20141213, end: 20141213

REACTIONS (4)
  - Erythema of eyelid [Recovered/Resolved]
  - Eyelid exfoliation [Not Recovered/Not Resolved]
  - Eyelids pruritus [Recovered/Resolved]
  - Eyelid oedema [Recovered/Resolved]

NARRATIVE: CASE EVENT DATE: 201409
